FAERS Safety Report 9883320 (Version 1)
Quarter: 2014Q1

REPORT INFORMATION
  Report Type: Report from Study
  Country: FR (occurrence: FR)
  Receive Date: 20140210
  Receipt Date: 20140210
  Transmission Date: 20141002
  Serious: Yes (Hospitalization, Other)
  Sender: FDA-Public Use
  Company Number: FR-ROCHE-1343545

PATIENT
  Sex: Male

DRUGS (6)
  1. RITUXIMAB [Suspect]
     Indication: RHEUMATOID ARTHRITIS
     Dosage: DAY1
     Route: 065
     Dates: start: 20080508
  2. RITUXIMAB [Suspect]
     Dosage: DAY 15
     Route: 065
     Dates: start: 20080523
  3. RITUXIMAB [Suspect]
     Dosage: DAY1
     Route: 065
     Dates: start: 20110419
  4. RITUXIMAB [Suspect]
     Dosage: DAY15
     Route: 065
     Dates: start: 20110503
  5. CORTANCYL [Concomitant]
     Dosage: DAILY
     Route: 065
  6. CORTANCYL [Concomitant]
     Dosage: DAILY
     Route: 065

REACTIONS (2)
  - Radicular pain [Recovered/Resolved with Sequelae]
  - Cataract operation [Recovered/Resolved]
